FAERS Safety Report 21045291 (Version 14)
Quarter: 2024Q3

REPORT INFORMATION
  Report Type: Report from Study
  Country: IL (occurrence: IL)
  Receive Date: 20220706
  Receipt Date: 20240807
  Transmission Date: 20241016
  Serious: Yes (Death, Hospitalization, Other)
  Sender: ABBVIE
  Company Number: IL-ABBVIE-21K-082-3988531-00

PATIENT
  Age: 76 Year
  Sex: Male
  Weight: 90 kg

DRUGS (42)
  1. VENETOCLAX [Suspect]
     Active Substance: VENETOCLAX
     Indication: Chronic lymphocytic leukaemia
     Dosage: 20 MILLIGRAM
     Route: 048
     Dates: start: 20210505, end: 20210511
  2. VENETOCLAX [Suspect]
     Active Substance: VENETOCLAX
     Indication: Chronic lymphocytic leukaemia
     Dosage: 50 MILLIGRAM
     Route: 048
     Dates: start: 20210512, end: 20210518
  3. VENETOCLAX [Suspect]
     Active Substance: VENETOCLAX
     Indication: Chronic lymphocytic leukaemia
     Dosage: 100 MILLIGRAM
     Route: 048
     Dates: start: 20210530, end: 20210605
  4. VENETOCLAX [Suspect]
     Active Substance: VENETOCLAX
     Indication: Chronic lymphocytic leukaemia
     Dosage: 200 MILLIGRAM
     Route: 048
     Dates: start: 20210606, end: 20210612
  5. VENETOCLAX [Suspect]
     Active Substance: VENETOCLAX
     Indication: Chronic lymphocytic leukaemia
     Dosage: 400 MILLIGRAM
     Route: 048
     Dates: start: 20210613, end: 20210629
  6. VENETOCLAX [Suspect]
     Active Substance: VENETOCLAX
     Indication: Chronic lymphocytic leukaemia
     Route: 048
     Dates: start: 20211025, end: 20211106
  7. VENETOCLAX [Suspect]
     Active Substance: VENETOCLAX
     Indication: Chronic lymphocytic leukaemia
     Dosage: DAILY DOSE MODIFIED-TREATMENT COMPLETION
     Route: 048
     Dates: start: 20211107, end: 20211114
  8. VENETOCLAX [Suspect]
     Active Substance: VENETOCLAX
     Indication: Chronic lymphocytic leukaemia
     Dosage: MODIFICATION TO THE DAILY DOSE DUE TO AE
     Route: 048
     Dates: start: 20211115, end: 20211212
  9. VENETOCLAX [Suspect]
     Active Substance: VENETOCLAX
     Indication: Chronic lymphocytic leukaemia
     Dosage: 300 MILLIGRAM
     Route: 048
     Dates: start: 20211219, end: 20220615
  10. COVID-19 vaccine [Concomitant]
     Indication: COVID-19 prophylaxis
     Dosage: ONCE,?FIRST ADMIN DATE-31 DEC 2020?LAST ADMIN DATE-31 DEC 2020
     Route: 030
  11. COVID-19 vaccine [Concomitant]
     Indication: COVID-19 prophylaxis
     Dosage: ONCE?FIRST ADMIN DATE-21 JAN 2021?LAST ADMIN DATE-21 JAN 2021
     Route: 030
     Dates: end: 20210121
  12. OBINUTUZUMAB [Suspect]
     Active Substance: OBINUTUZUMAB
     Indication: Prophylaxis
     Dosage: CYCLE NUMBER 1
     Route: 065
     Dates: start: 20210412, end: 20210413
  13. OBINUTUZUMAB [Suspect]
     Active Substance: OBINUTUZUMAB
     Indication: Prophylaxis
     Dosage: CYCLE NUMBER 2
     Route: 065
     Dates: start: 20210418, end: 20210418
  14. OBINUTUZUMAB [Suspect]
     Active Substance: OBINUTUZUMAB
     Indication: Prophylaxis
     Dosage: CYCLE NUMBER 3
     Route: 065
     Dates: start: 20210425, end: 20210425
  15. OBINUTUZUMAB [Suspect]
     Active Substance: OBINUTUZUMAB
     Indication: Prophylaxis
     Dosage: CYCLE NUMBER 4
     Route: 065
     Dates: start: 20210512, end: 20210512
  16. OBINUTUZUMAB [Suspect]
     Active Substance: OBINUTUZUMAB
     Indication: Prophylaxis
     Dosage: CYCLE NUMBER 5
     Route: 065
     Dates: start: 20210621, end: 20210621
  17. OBINUTUZUMAB [Suspect]
     Active Substance: OBINUTUZUMAB
     Indication: Prophylaxis
     Dosage: 1000 MG, CYCLE NUMBER 6
     Route: 065
     Dates: start: 20210728, end: 20210728
  18. OBINUTUZUMAB [Suspect]
     Active Substance: OBINUTUZUMAB
     Indication: Prophylaxis
     Dosage: 1000 MG, CYCLE NUMBER 7
     Route: 065
     Dates: start: 20210825, end: 20210825
  19. OBINUTUZUMAB [Suspect]
     Active Substance: OBINUTUZUMAB
     Indication: Prophylaxis
     Dosage: 1000 MG?CYCLE NUMBER 8
     Route: 065
     Dates: start: 20210922, end: 20210922
  20. OBINUTUZUMAB [Suspect]
     Active Substance: OBINUTUZUMAB
     Indication: Prophylaxis
     Route: 065
     Dates: start: 20210413, end: 20210413
  21. ALLOPURINOL [Concomitant]
     Active Substance: ALLOPURINOL
     Indication: Prophylaxis
     Dates: start: 20210412, end: 20210412
  22. ALLOPURINOL [Concomitant]
     Active Substance: ALLOPURINOL
     Indication: Prophylaxis
     Dates: start: 20210512, end: 20210512
  23. ALLOPURINOL [Concomitant]
     Active Substance: ALLOPURINOL
     Indication: Prophylaxis
     Dates: start: 20210621, end: 20210621
  24. HYDROCORTISONE [Concomitant]
     Active Substance: HYDROCORTISONE\HYDROCORTISONE ACETATE
     Indication: Adrenocortical insufficiency acute
     Dosage: FIRST ADMIN DATE-12 APR 2021?LAST ADMIN DATE-12 APR 2021
  25. ACETAMINOPHEN [Concomitant]
     Active Substance: ACETAMINOPHEN
     Indication: Pain management
     Dates: start: 20210621, end: 20210621
  26. ACETAMINOPHEN [Concomitant]
     Active Substance: ACETAMINOPHEN
     Indication: Pain management
     Dates: start: 20210425, end: 20210425
  27. ACETAMINOPHEN [Concomitant]
     Active Substance: ACETAMINOPHEN
     Indication: Pain management
     Dates: start: 20210418, end: 20210418
  28. ACETAMINOPHEN [Concomitant]
     Active Substance: ACETAMINOPHEN
     Indication: Pain management
     Dates: start: 20210512, end: 20210512
  29. LORATADINE [Concomitant]
     Active Substance: LORATADINE
     Indication: Hypersensitivity
     Dates: start: 20210512, end: 20210512
  30. LORATADINE [Concomitant]
     Active Substance: LORATADINE
     Indication: Hypersensitivity
     Dates: start: 20210418, end: 20210418
  31. LORATADINE [Concomitant]
     Active Substance: LORATADINE
     Indication: Hypersensitivity
     Dates: start: 20210425, end: 20210425
  32. LORATADINE [Concomitant]
     Active Substance: LORATADINE
     Indication: Hypersensitivity
     Dates: start: 20210621, end: 20210621
  33. EPOETIN BETA [Concomitant]
     Active Substance: ERYTHROPOIETIN
     Indication: Anaemia
     Dates: start: 20210502, end: 20210502
  34. EPOETIN BETA [Concomitant]
     Active Substance: ERYTHROPOIETIN
     Indication: Anaemia
     Dates: start: 20210519, end: 20210519
  35. EPOETIN BETA [Concomitant]
     Active Substance: ERYTHROPOIETIN
     Indication: Anaemia
     Dates: start: 20210606, end: 20210606
  36. EPOETIN BETA [Concomitant]
     Active Substance: ERYTHROPOIETIN
     Indication: Anaemia
     Dates: start: 20210503, end: 20210503
  37. HUMAN RED BLOOD CELL [Concomitant]
     Active Substance: HUMAN RED BLOOD CELL
     Indication: Anaemia
     Dosage: PACKED RBC
     Dates: start: 20210502, end: 20210502
  38. Fusid [Concomitant]
     Indication: Hypertension
     Dosage: FIRST ADMIN DATE-02 MAY 2021?LAST ADMIN DATE-02 MAY 2021
     Route: 065
  39. RENVELA [Concomitant]
     Active Substance: SEVELAMER CARBONATE
     Indication: Hyperphosphataemia
     Dosage: FIRST ADMIN DATE- 14 APR 2021?LAST ADMIN DATE- 14 APR 2021
  40. METHYLPREDNISOLONE [Concomitant]
     Active Substance: METHYLPREDNISOLONE
     Indication: Allergy prophylaxis
     Dates: start: 20210621, end: 20210621
  41. METHYLPREDNISOLONE [Concomitant]
     Active Substance: METHYLPREDNISOLONE
     Indication: Allergy prophylaxis
     Dates: start: 20210512, end: 20210512
  42. NEUPOGEN [Concomitant]
     Active Substance: FILGRASTIM
     Indication: Myelosuppression
     Dates: start: 20211013, end: 20211014

REACTIONS (16)
  - Septic shock [Fatal]
  - Acute kidney injury [Not Recovered/Not Resolved]
  - Neutropenia [Recovered/Resolved]
  - Neutropenia [Recovered/Resolved]
  - Thrombocytopenia [Recovered/Resolved]
  - Neutropenia [Recovered/Resolved]
  - Neutropenia [Recovered/Resolved]
  - Neutropenia [Unknown]
  - Chronic obstructive pulmonary disease [Not Recovered/Not Resolved]
  - COVID-19 [Recovered/Resolved]
  - Metapneumovirus infection [Recovered/Resolved]
  - Thrombocytopenia [Recovered/Resolved]
  - Neutropenia [Recovered/Resolved]
  - Neutropenia [Recovered/Resolved]
  - Asthenia [Not Recovered/Not Resolved]
  - Pyrexia [Recovered/Resolved]

NARRATIVE: CASE EVENT DATE: 20210519
